FAERS Safety Report 5373984-5 (Version None)
Quarter: 2007Q2

REPORT INFORMATION
  Report Type: 
  Country: None (occurrence: None)
  Receive Date: 20070627
  Receipt Date: 20070612
  Transmission Date: 20071010
  Serious: Yes (Death, Hospitalization)
  Sender: FDA-Public Use
  Company Number: APP200700190

PATIENT
  Age: 9 Year
  Sex: Male
  Weight: 24.0406 kg

DRUGS (16)
  1. VANCOMYCIN HYDROCHLORIDE [Suspect]
     Indication: OSTEOMYELITIS
     Dosage: SEE IMAGE
     Route: 042
     Dates: start: 20070213, end: 20070320
  2. VANCOMYCIN HYDROCHLORIDE [Suspect]
     Indication: OSTEOMYELITIS
     Dosage: SEE IMAGE
     Route: 042
     Dates: start: 20070323, end: 20070329
  3. VANCOMYCIN HYDROCHLORIDE [Suspect]
     Indication: OSTEOMYELITIS
     Dosage: SEE IMAGE
     Route: 042
     Dates: start: 20070330, end: 20070504
  4. VANCOMYCIN HYDROCHLORIDE [Suspect]
     Indication: OSTEOMYELITIS
     Dosage: SEE IMAGE
     Route: 042
     Dates: start: 20070511, end: 20070517
  5. VANCOMYCIN HYDROCHLORIDE [Suspect]
     Indication: OSTEOMYELITIS
     Dosage: SEE IMAGE
     Route: 042
     Dates: start: 20070517, end: 20070608
  6. LAMICTAL (LAMOTRIGINE)Q [Concomitant]
  7. XEPONEX (LEVOSALBUTAMOL) [Concomitant]
  8. MELATONIN (MELATONIN) [Concomitant]
  9. BACLOFEN [Concomitant]
  10. VALIUM [Concomitant]
  11. ZANTAC (RANITDINE HYROCHLORIDE) [Concomitant]
  12. CROMOLYN (CROMOGLICATE SODIUM) [Concomitant]
  13. PULMICORT [Concomitant]
  14. CLONAZEPAM [Concomitant]
  15. ALBUTEROL [Concomitant]
  16. INTAL [Concomitant]

REACTIONS (1)
  - DYSPNOEA [None]
